FAERS Safety Report 11835294 (Version 3)
Quarter: 2016Q2

REPORT INFORMATION
  Report Type: Report from Study
  Country: US (occurrence: US)
  Receive Date: 20151215
  Receipt Date: 20160608
  Transmission Date: 20160815
  Serious: No
  Sender: FDA-Public Use
  Company Number: US-AMGEN-USASP2015132907

PATIENT
  Age: 62 Year
  Sex: Female
  Weight: 66.67 kg

DRUGS (1)
  1. ENBREL [Suspect]
     Active Substance: ETANERCEPT
     Indication: RHEUMATOID ARTHRITIS
     Dosage: 50 MG, QWK
     Route: 058
     Dates: start: 20140206

REACTIONS (7)
  - Injection site pain [Not Recovered/Not Resolved]
  - Renal pain [Recovered/Resolved]
  - Underdose [Unknown]
  - Injection site haemorrhage [Unknown]
  - Device issue [Unknown]
  - Back pain [Recovered/Resolved]
  - Stomatitis [Unknown]

NARRATIVE: CASE EVENT DATE: 201402
